FAERS Safety Report 13472462 (Version 5)
Quarter: 2017Q3

REPORT INFORMATION
  Report Type: Report from Study
  Country: ES (occurrence: ES)
  Receive Date: 20170424
  Receipt Date: 20170714
  Transmission Date: 20171127
  Serious: No
  Sender: FDA-Public Use
  Company Number: ES-ROCHE-1922794

PATIENT
  Age: 62 Year
  Sex: Female
  Weight: 71 kg

DRUGS (3)
  1. NAB-PACLITAXEL [Suspect]
     Active Substance: PACLITAXEL
     Indication: BREAST CANCER METASTATIC
     Dosage: THE MOST RECENT DOSE OF NAB-PACLITAXEL 100 MG/M2 PRIOR TO THE EVENT ONSET WAS ON 29/MAR/2017?THE MOS
     Route: 042
     Dates: start: 20161228
  2. ATEZOLIZUMAB. [Suspect]
     Active Substance: ATEZOLIZUMAB
     Indication: BREAST CANCER METASTATIC
     Dosage: THE MOST RECENT DOSE OF BLINDED ATEZOLIZUMAB PRIOR TO THE EVENT ONSET WAS ON 22/MAR/2017 840 MG.
     Route: 042
     Dates: start: 20161228
  3. PRIMPERAN [Concomitant]
     Active Substance: METOCLOPRAMIDE HYDROCHLORIDE
     Indication: NAUSEA
     Route: 065
     Dates: start: 20170111, end: 20170523

REACTIONS (1)
  - Autoimmune nephritis [Not Recovered/Not Resolved]

NARRATIVE: CASE EVENT DATE: 20170405
